FAERS Safety Report 5507688-2 (Version None)
Quarter: 2007Q4

REPORT INFORMATION
  Report Type: 
  Country: None (occurrence: None)
  Receive Date: 20071106
  Receipt Date: 20071101
  Transmission Date: 20080405
  Serious: Yes (Life-Threatening, Hospitalization, Disabling)
  Sender: FDA-Public Use
  Company Number: B0488658A

PATIENT
  Age: 73 Year
  Sex: Male
  Weight: 68 kg

DRUGS (9)
  1. VALTREX [Suspect]
     Indication: HERPES ZOSTER
     Dosage: 1000MG THREE TIMES PER DAY
     Route: 048
     Dates: start: 20070921, end: 20070924
  2. OLMETEC [Suspect]
     Indication: CARDIAC FAILURE
     Dosage: 2.5MG TWICE PER DAY
     Route: 048
     Dates: end: 20070925
  3. CRESTOR [Suspect]
     Dosage: 2.5MG PER DAY
     Route: 048
     Dates: start: 20070620, end: 20070925
  4. LOXONIN [Suspect]
     Indication: ANALGESIA
     Dosage: 60MG TWICE PER DAY
     Route: 048
     Dates: start: 20070921, end: 20070923
  5. ARTIST [Concomitant]
     Indication: CARDIAC FAILURE
     Dosage: 40MG PER DAY
     Route: 048
  6. NEUQUINON [Concomitant]
     Indication: CARDIAC FAILURE
     Dosage: 40MG PER DAY
     Route: 048
  7. RABEPRAZOLE SODIUM [Concomitant]
     Indication: GASTRIC ULCER
     Dosage: 10MG PER DAY
     Route: 048
  8. MAGNESIUM OXIDE [Concomitant]
     Indication: CONSTIPATION
     Dosage: 2.01G PER DAY
     Route: 048
  9. ZOLPIDEM [Concomitant]
     Indication: INSOMNIA
     Dosage: 5MG PER DAY
     Route: 048

REACTIONS (3)
  - ANURIA [None]
  - BLOOD CREATININE INCREASED [None]
  - RENAL FAILURE ACUTE [None]
